FAERS Safety Report 23962396 (Version 1)
Quarter: 2024Q2

REPORT INFORMATION
  Report Type: Spontaneous
  Country: ES (occurrence: ES)
  Receive Date: 20240611
  Receipt Date: 20240611
  Transmission Date: 20240716
  Serious: Yes (Hospitalization)
  Sender: FDA-Public Use
  Company Number: ES-ROCHE-3416632

PATIENT
  Age: 50 Year
  Sex: Male
  Weight: 94 kg

DRUGS (41)
  1. CARBOPLATIN [Suspect]
     Active Substance: CARBOPLATIN
     Indication: Non-small cell lung cancer metastatic
     Dosage: 750 MILLIGRAM, 3 WEEKS (ON 17/JUL/2023 MOST RECENT DOSE OF STUDY DRUG WAS GIVEN PRIOR TO AE)
     Route: 042
     Dates: start: 20230510
  2. PEMETREXED [Suspect]
     Active Substance: PEMETREXED
     Indication: Non-small cell lung cancer metastatic
     Dosage: 975 MILLIGRAM (ON 28/AUG/2023 RECEIVED MOST RECENT DOSE OF PEMETREXED PRIOR TO SAE 975 MG.)
     Route: 042
  3. PEMETREXED [Suspect]
     Active Substance: PEMETREXED
     Dosage: 1015 MILLIGRAM, 3 WEEK (ON 28/AUG/2023 RECEIVED MOST RECENT DOSE OF PEMETREXED PRIOR TO SAE 975 MG.)
     Route: 042
     Dates: start: 20230510
  4. ATEZOLIZUMAB [Concomitant]
     Active Substance: ATEZOLIZUMAB
     Indication: Non-small cell lung cancer metastatic
     Dosage: UNK (ON 28/AUG/2023, MOST RECENT DOSE OF BLINDED ATEZOLIZUMAB PRIOR TO SAE.)
     Route: 065
     Dates: start: 20230510
  5. PREDNISONE [Concomitant]
     Active Substance: PREDNISONE
     Indication: Respiratory failure
     Dosage: 30 MILLIGRAM, ONCE A DAY
     Route: 065
     Dates: start: 20230904, end: 20230905
  6. PREDNISONE [Concomitant]
     Active Substance: PREDNISONE
     Dosage: UNK
     Route: 065
     Dates: start: 20230906, end: 20230907
  7. PREDNISONE [Concomitant]
     Active Substance: PREDNISONE
     Dosage: UNK
     Route: 065
     Dates: start: 20230908, end: 20230910
  8. PREDNISONE [Concomitant]
     Active Substance: PREDNISONE
     Dosage: UNK
     Route: 065
     Dates: start: 20230911, end: 20230913
  9. DIPYRONE [Concomitant]
     Active Substance: DIPYRONE
     Indication: Respiratory failure
     Dosage: 2 GRAM, ONCE A DAY
     Route: 065
     Dates: start: 20230903, end: 20230904
  10. LYRICA [Concomitant]
     Active Substance: PREGABALIN
     Indication: Back pain
     Dosage: 150 MILLIGRAM, TWO TIMES A DAY
     Route: 065
  11. VENTOLIN [Concomitant]
     Active Substance: ALBUTEROL SULFATE
     Indication: Asthma
     Dosage: 100 MICROGRAM, ONCE A DAY
     Route: 065
  12. OMEPRAZOLE [Concomitant]
     Active Substance: DONEPEZIL HYDROCHLORIDE\OMEPRAZOLE\OMEPRAZOLE MAGNESIUM
     Indication: Product used for unknown indication
     Dosage: 20 MILLIGRAM, ONCE A DAY
     Route: 065
  13. PEITEL [Concomitant]
     Indication: Rash
     Dosage: UNK
     Route: 065
     Dates: start: 20230517
  14. ENOXAPARIN [Concomitant]
     Active Substance: ENOXAPARIN
     Indication: Respiratory failure
     Dosage: 40 MILLIGRAM, ONCE A DAY
     Route: 065
     Dates: start: 20230904, end: 20230904
  15. METHYLPREDNISOLONE [Concomitant]
     Active Substance: METHYLPREDNISOLONE
     Indication: Respiratory failure
     Dosage: 20 MILLIGRAM, ONCE A DAY
     Route: 065
     Dates: start: 20230903, end: 20230904
  16. ALBUTEROL\IPRATROPIUM [Concomitant]
     Active Substance: ALBUTEROL\IPRATROPIUM
     Indication: Respiratory failure
     Dosage: 4.5 MILLILITER, FOUR TIMES/DAY (SALBUTAMOL 5 MG+ IPATROPIUM (500UG))
     Route: 065
     Dates: start: 20230903, end: 20230905
  17. Terracortril [Concomitant]
     Indication: Conjunctivitis
     Dosage: UNK UNK, 3 TIMES A DAY
     Route: 065
     Dates: start: 20230804, end: 20230811
  18. ZOLPIDEM [Concomitant]
     Active Substance: ZOLPIDEM TARTRATE
     Indication: Insomnia
     Dosage: 10 MILLIGRAM, ONCE A DAY
     Route: 065
     Dates: start: 20230714
  19. AMOXICILLIN\CLAVULANIC ACID [Concomitant]
     Active Substance: AMOXICILLIN\CLAVULANIC ACID
     Indication: Respiratory failure
     Dosage: 500 MILLIGRAM, 3 TIMES A DAY
     Route: 065
     Dates: start: 20230903, end: 20230905
  20. AMOXICILLIN\CLAVULANIC ACID [Concomitant]
     Active Substance: AMOXICILLIN\CLAVULANIC ACID
     Indication: Cellulitis
     Dosage: 1 DOSAGE FORM
     Route: 065
     Dates: start: 20230804, end: 20230814
  21. TIRAGOLUMAB [Concomitant]
     Active Substance: TIRAGOLUMAB
     Indication: Non-small cell lung cancer metastatic
     Dosage: UNK, EVERY 3 WEEKS(ON 28/AUG/2023, MOST RECENT DOSE OF BLINDED TIRAGOLUMAB PRIOR TO AE/SAE.)
     Route: 065
     Dates: start: 20230510
  22. FENTANYL [Concomitant]
     Active Substance: FENTANYL\FENTANYL CITRATE
     Indication: Respiratory failure
     Dosage: 200 MICROGRAM, ONCE A DAY
     Route: 065
     Dates: start: 20230905, end: 20230905
  23. Kaptic [Concomitant]
     Indication: Back pain
     Dosage: 200 MICROGRAM
     Route: 065
     Dates: start: 20230509
  24. DEXAMETHASONE [Concomitant]
     Active Substance: DEXAMETHASONE
     Indication: Product used for unknown indication
     Dosage: 4 MILLIGRAM, TWO TIMES A DAY
     Route: 065
     Dates: start: 20230827, end: 20230827
  25. DEXAMETHASONE [Concomitant]
     Active Substance: DEXAMETHASONE
     Dosage: 4 MILLIGRAM, ONCE A DAY
     Route: 065
     Dates: start: 20230829, end: 20230829
  26. DEXAMETHASONE [Concomitant]
     Active Substance: DEXAMETHASONE
     Dosage: 20 MILLIGRAM, ONCE A DAY
     Route: 065
     Dates: start: 20230828, end: 20230828
  27. FENTANYL TRANSDERMAL SYSTEM [Concomitant]
     Active Substance: FENTANYL
     Indication: Back pain
     Dosage: 25 MICROGRAM, TWO TIMES A DAY
     Route: 065
     Dates: start: 20230509
  28. PREGABALIN [Concomitant]
     Active Substance: PREGABALIN
     Indication: Respiratory failure
     Dosage: 75 MILLIGRAM, ONCE A DAY
     Route: 065
     Dates: start: 20230904, end: 20230905
  29. VOLTAREN [Concomitant]
     Active Substance: DICLOFENAC SODIUM
     Indication: Gastrointestinal disorder prophylaxis
     Dosage: UNK (MEDICATION FREQUENCY UNKNOWN)
     Route: 065
     Dates: start: 20230714
  30. VOLTAREN [Concomitant]
     Active Substance: DICLOFENAC SODIUM
     Indication: Conjunctivitis
     Dosage: UNK (MEDICATION DOSE 1 OTHER)
     Route: 065
     Dates: start: 20230804, end: 20230824
  31. ATROALDO [Concomitant]
     Indication: Asthma
     Dosage: 40 MICROGRAM, FOUR TIMES/DAY
     Route: 065
  32. CYANOCOBALAMIN [Concomitant]
     Active Substance: CYANOCOBALAMIN
     Indication: Product used for unknown indication
     Dosage: 1000 MICROGRAM, EVERY OTHER DAY
     Route: 065
     Dates: start: 20230421
  33. NICOTINE [Concomitant]
     Active Substance: NICOTINE
     Indication: Ex-tobacco user
     Dosage: UNK
     Route: 065
     Dates: start: 20230905
  34. MONTELUKAST [Concomitant]
     Active Substance: MONTELUKAST SODIUM
     Indication: Chronic obstructive pulmonary disease
     Dosage: 10 MILLIGRAM, ONCE A DAY
     Route: 065
  35. BECLOMETHASONE\FORMOTEROL [Concomitant]
     Active Substance: BECLOMETHASONE\FORMOTEROL
     Indication: Respiratory failure
     Dosage: UNK UNK, ONCE A DAY (2 PUFF)
     Route: 065
     Dates: start: 20230904, end: 20230905
  36. METAMIZOLE [Concomitant]
     Active Substance: METAMIZOLE
     Indication: Back pain
     Dosage: 2 GRAM, 3 TIMES A DAY
     Route: 065
     Dates: start: 20230509
  37. ACETAMINOPHEN [Concomitant]
     Active Substance: ACETAMINOPHEN
     Indication: Respiratory failure
     Dosage: 1 GRAM, ONCE A DAY
     Route: 065
     Dates: start: 20230903, end: 20230904
  38. BECLOMETHASONE DIPROPIONATE\FORMOTEROL FUMARATE\GLYCOPYRROLATE [Concomitant]
     Active Substance: BECLOMETHASONE DIPROPIONATE\FORMOTEROL FUMARATE\GLYCOPYRROLATE
     Indication: Chronic obstructive pulmonary disease
     Dosage: UNK UNK, ONCE A DAY (1 PUFF)
     Route: 065
  39. PEMBROLIZUMAB [Concomitant]
     Active Substance: PEMBROLIZUMAB
     Indication: Non-small cell lung cancer metastatic
     Dosage: UNK, 3 WEEKS (ON 28/AUG/2023, MOST RECENT DOSE OF BLINDED PEMBROLIZUMAB PRIOR TO SAE.)
     Route: 065
     Dates: start: 20230510
  40. HYDROCORTISONE [Concomitant]
     Active Substance: HYDROCORTISONE\HYDROCORTISONE ACETATE
     Indication: Respiratory failure
     Dosage: 150 MILLIGRAM, ONCE A DAY
     Route: 065
     Dates: start: 20230903, end: 20230903
  41. FOLIC ACID [Concomitant]
     Active Substance: FOLIC ACID
     Indication: Product used for unknown indication
     Dosage: 5 MILLIGRAM, ONCE A DAY
     Route: 065

REACTIONS (1)
  - Chronic obstructive pulmonary disease [Recovered/Resolved]

NARRATIVE: CASE EVENT DATE: 20230903
